FAERS Safety Report 25378003 (Version 1)
Quarter: 2025Q2

REPORT INFORMATION
  Report Type: Spontaneous
  Country: CN (occurrence: CN)
  Receive Date: 20250530
  Receipt Date: 20250530
  Transmission Date: 20250717
  Serious: Yes (Hospitalization)
  Sender: BAXTER
  Company Number: None

PATIENT
  Age: 43 Year
  Sex: Male
  Weight: 85 kg

DRUGS (9)
  1. IFOSFAMIDE [Suspect]
     Active Substance: IFOSFAMIDE
     Indication: Rhabdomyosarcoma
     Dosage: 6.000000 G, QD, INJECTION, SECOND CYCLE OF TREATMENT
     Route: 041
     Dates: start: 20250424, end: 20250424
  2. IFOSFAMIDE [Suspect]
     Active Substance: IFOSFAMIDE
     Dosage: 3.000000 G, QD, INJECTION
     Route: 041
     Dates: start: 20250425, end: 20250427
  3. SODIUM CHLORIDE [Suspect]
     Active Substance: SODIUM CHLORIDE
     Dosage: 210 ML, QD, 0.9 % (WITH BENMELSTOBART)
     Route: 041
     Dates: start: 20250424
  4. SODIUM CHLORIDE [Suspect]
     Active Substance: SODIUM CHLORIDE
     Dosage: 500 ML, QD, 0.9 % (WITH IFOSFAMIDE 6 G)
     Route: 041
     Dates: start: 20250424, end: 20250424
  5. SODIUM CHLORIDE [Suspect]
     Active Substance: SODIUM CHLORIDE
     Dosage: 250 ML, QD, 0.9 % (WITH IFOSFAMIDE 3 G)
     Route: 041
     Dates: start: 20250425, end: 20250427
  6. SODIUM CHLORIDE [Suspect]
     Active Substance: SODIUM CHLORIDE
     Dosage: 500 ML, QD, 0.9 % (WITH ETOPOSIDE)
     Route: 041
     Dates: start: 20250425, end: 20250427
  7. ETOPOSIDE [Suspect]
     Active Substance: ETOPOSIDE
     Indication: Rhabdomyosarcoma
     Dosage: 0.100000 G, QD, SECOND CYCLE OF TREATMENT
     Route: 041
     Dates: start: 20250425, end: 20250427
  8. BEMCENTINIB [Suspect]
     Active Substance: BEMCENTINIB
     Indication: Rhabdomyosarcoma
     Dosage: 1200.000 MG, QD
     Route: 041
     Dates: start: 20250424, end: 20250424
  9. BENMELSTOBART [Concomitant]
     Active Substance: BENMELSTOBART
     Indication: Rhabdomyosarcoma
     Dosage: 1200 MG, QD, SECOND CYCLE OF TREATMENT
     Route: 041
     Dates: start: 20250424

REACTIONS (3)
  - Granulocyte count decreased [Recovering/Resolving]
  - Pyrexia [Recovering/Resolving]
  - Diarrhoea [Recovering/Resolving]

NARRATIVE: CASE EVENT DATE: 20250501
